FAERS Safety Report 13734633 (Version 1)
Quarter: 2017Q3

REPORT INFORMATION
  Report Type: Spontaneous
  Country: US (occurrence: US)
  Receive Date: 20170704
  Receipt Date: 20170704
  Transmission Date: 20171127
  Serious: Yes (Disabling)
  Sender: FDA-Public Use
  Company Number: None

PATIENT
  Age: 68 Year
  Sex: Female

DRUGS (8)
  1. MAGNESIUM [Concomitant]
     Active Substance: MAGNESIUM
  2. GADAVIST [Suspect]
     Active Substance: GADOBUTROL
  3. MULTIVITAMIN [Concomitant]
     Active Substance: VITAMINS
  4. REMERON [Concomitant]
     Active Substance: MIRTAZAPINE
  5. FISH OIL [Concomitant]
     Active Substance: FISH OIL
  6. ZINC. [Concomitant]
     Active Substance: ZINC
  7. SYNTHROID [Concomitant]
     Active Substance: LEVOTHYROXINE SODIUM
  8. CALCIUM [Concomitant]
     Active Substance: CALCIUM

REACTIONS (7)
  - Dry eye [None]
  - Headache [None]
  - Tinnitus [None]
  - Depression [None]
  - Madarosis [None]
  - Alopecia [None]
  - Arthralgia [None]

NARRATIVE: CASE EVENT DATE: 20170512
